FAERS Safety Report 5261845-1 (Version None)
Quarter: 2007Q1

REPORT INFORMATION
  Report Type: 
  Country: None (occurrence: None)
  Receive Date: 20070310
  Receipt Date: 20070228
  Transmission Date: 20070707
  Serious: Yes (Hospitalization, Other)
  Sender: FDA-Public Use
  Company Number: 2006UW25375

PATIENT
  Sex: Male
  Weight: 94.5 kg

DRUGS (4)
  1. SEROQUEL [Suspect]
     Indication: BIPOLAR DISORDER
     Route: 048
     Dates: start: 20020101
  2. HALDOL [Suspect]
     Dates: start: 20020101
  3. ZYPREXA [Suspect]
     Dates: start: 20020101
  4. GEODON [Concomitant]

REACTIONS (7)
  - DIABETES MELLITUS [None]
  - MENTAL DISORDER [None]
  - NEUROLEPTIC MALIGNANT SYNDROME [None]
  - OVERDOSE [None]
  - PANCREATITIS [None]
  - SCHIZOPHRENIA [None]
  - TARDIVE DYSKINESIA [None]
